FAERS Safety Report 11031043 (Version 1)
Quarter: 2015Q2

REPORT INFORMATION
  Report Type: Spontaneous
  Country: US (occurrence: US)
  Receive Date: 20150415
  Receipt Date: 20150415
  Transmission Date: 20150821
  Serious: No
  Sender: FDA-Public Use
  Company Number: US-ASTRAZENECA-2015SE08343

PATIENT
  Sex: Female

DRUGS (1)
  1. PRILOSEC [Suspect]
     Active Substance: OMEPRAZOLE MAGNESIUM
     Route: 048
     Dates: end: 20150121

REACTIONS (4)
  - Abdominal pain upper [Recovered/Resolved]
  - Drug dispensing error [Unknown]
  - Glossodynia [Recovered/Resolved]
  - Diarrhoea [Recovered/Resolved]
